FAERS Safety Report 7445116-0 (Version None)
Quarter: 2011Q2

REPORT INFORMATION
  Report Type: 
  Country: None (occurrence: None)
  Receive Date: 20110420
  Receipt Date: 20110404
  Transmission Date: 20111010
  Serious: Yes (Hospitalization)
  Sender: FDA-Public Use
  Company Number: WAES 1104BRA00011

PATIENT
  Age: 70 Year
  Sex: Female

DRUGS (7)
  1. APIXABAN [Suspect]
     Indication: PROPHYLAXIS
  2. WARFARIN SODIUM [Concomitant]
  3. FUROSEMIDE [Concomitant]
  4. ALLOPURINOL [Suspect]
     Dates: end: 20101001
  5. LEVOTHYROXINE SODIUM [Concomitant]
  6. ZOCOR [Suspect]
     Dates: end: 20101001
  7. DIGOXIN [Concomitant]

REACTIONS (10)
  - COUGH [None]
  - BACK PAIN [None]
  - DECREASED APPETITE [None]
  - PAIN IN EXTREMITY [None]
  - MALAISE [None]
  - DYSPNOEA [None]
  - DRUG INTERACTION [None]
  - ARTHRALGIA [None]
  - NAUSEA [None]
  - PSYCHOSOMATIC DISEASE [None]
